FAERS Safety Report 10534360 (Version 1)
Quarter: 2014Q4

REPORT INFORMATION
  Report Type: Spontaneous
  Country: US (occurrence: None)
  Receive Date: 20141021
  Receipt Date: 20141021
  Transmission Date: 20150529
  Serious: Yes (Life-Threatening, Hospitalization, Disabling)
  Sender: FDA-Public Use
  Company Number: None

PATIENT
  Age: 66 Year
  Sex: Male
  Weight: 143 kg

DRUGS (16)
  1. INSULIN ASPART [Concomitant]
     Active Substance: INSULIN ASPART
  2. METFORMIN [Concomitant]
     Active Substance: METFORMIN HYDROCHLORIDE
  3. ATORVASTATIN [Concomitant]
     Active Substance: ATORVASTATIN
  4. WARFARIN 4 MG [Suspect]
     Active Substance: WARFARIN
     Indication: DEEP VEIN THROMBOSIS
     Dosage: 1 TABLET
     Route: 048
     Dates: start: 20140909
  5. METAZOLONE [Concomitant]
  6. CARVEDILOL. [Concomitant]
     Active Substance: CARVEDILOL
  7. PAROXETINE [Concomitant]
     Active Substance: PAROXETINE\PAROXETINE HYDROCHLORIDE
  8. LISINOPRIL. [Concomitant]
     Active Substance: LISINOPRIL
  9. ALBUTEROL INHALER [Concomitant]
     Active Substance: ALBUTEROL
  10. DAPSONE. [Concomitant]
     Active Substance: DAPSONE
  11. CHONDROITIN [Concomitant]
     Active Substance: CHONDROITIN
  12. FLAXSEED [Concomitant]
     Active Substance: FLAX SEED
  13. WARFARIN 4 MG [Suspect]
     Active Substance: WARFARIN
     Indication: CEREBROVASCULAR ACCIDENT PROPHYLAXIS
     Dosage: 1 TABLET
     Route: 048
     Dates: start: 20140909
  14. GARLIC. [Concomitant]
     Active Substance: GARLIC
  15. CINNAMON. [Concomitant]
     Active Substance: CINNAMON
  16. DOXYCYCLINE. [Concomitant]
     Active Substance: DOXYCYCLINE

REACTIONS (6)
  - Haemorrhagic stroke [None]
  - Diplopia [None]
  - Vomiting [None]
  - Headache [None]
  - Fall [None]
  - Gait disturbance [None]

NARRATIVE: CASE EVENT DATE: 20141019
